FAERS Safety Report 9349664 (Version 1)
Quarter: 2013Q2

REPORT INFORMATION
  Report Type: Spontaneous
  Country: FR (occurrence: None)
  Receive Date: 20130611
  Receipt Date: 20130611
  Transmission Date: 20140414
  Serious: Yes (Hospitalization)
  Sender: FDA-Public Use
  Company Number: 2013000122

PATIENT
  Age: 57 Year
  Sex: Male

DRUGS (1)
  1. ACEON (PERINDOPRIL ERBUMINE) TABLET [Suspect]
     Indication: HYPERTENSION
     Route: 048
     Dates: end: 20130313

REACTIONS (4)
  - Dehydration [None]
  - Diarrhoea [None]
  - Vomiting [None]
  - Renal failure acute [None]
